FAERS Safety Report 17622062 (Version 2)
Quarter: 2020Q2

REPORT INFORMATION
  Report Type: Spontaneous
  Country: BE (occurrence: BE)
  Receive Date: 20200403
  Receipt Date: 20200409
  Transmission Date: 20200713
  Serious: Yes (Hospitalization, Other)
  Sender: FDA-Public Use
  Company Number: BE-PFIZER INC-2020135063

PATIENT
  Age: 7 Decade
  Sex: Female

DRUGS (2)
  1. CARBOPLATIN. [Suspect]
     Active Substance: CARBOPLATIN
     Indication: OESOPHAGEAL ADENOCARCINOMA
     Dosage: UNK (NEOADJUVANT CHEMO-RADIOTHERAPY)
  2. PACLITAXEL. [Suspect]
     Active Substance: PACLITAXEL
     Indication: OESOPHAGEAL ADENOCARCINOMA
     Dosage: UNK (NEOADJUVANT CHEMO-RADIOTHERAPY)
     Route: 065

REACTIONS (16)
  - Pneumonia aspiration [Recovered/Resolved]
  - Pleural effusion [Recovered/Resolved]
  - Respiratory distress [Unknown]
  - Intestinal anastomosis complication [Unknown]
  - Respiratory failure [Recovered/Resolved]
  - Pulmonary hypertension [Recovered/Resolved]
  - Empyema [Recovered/Resolved]
  - Respiratory acidosis [Unknown]
  - Hypercapnia [Recovered/Resolved]
  - Pulmonary sepsis [Recovered/Resolved]
  - Gastric fistula [Unknown]
  - Ischaemia [Recovered/Resolved]
  - Pulmonary embolism [Recovered/Resolved]
  - Bronchial fistula [Unknown]
  - Atelectasis [Recovered/Resolved]
  - Citrobacter infection [Recovered/Resolved]
